FAERS Safety Report 9974997 (Version 1)
Quarter: 2014Q1

REPORT INFORMATION
  Report Type: Spontaneous
  Country: US (occurrence: US)
  Receive Date: 20140306
  Receipt Date: 20140306
  Transmission Date: 20141002
  Serious: No
  Sender: FDA-Public Use
  Company Number: US-ABBVIE-13P-163-1159951-00

PATIENT
  Age: 77 Year
  Sex: Female
  Weight: 64.92 kg

DRUGS (16)
  1. SYNTHROID [Concomitant]
     Indication: HYPOTHYROIDISM
     Dates: start: 1983
  2. MERCAPTOPURINE [Concomitant]
     Indication: PRODUCT USED FOR UNKNOWN INDICATION
  3. HUMIRA [Suspect]
     Indication: CROHN^S DISEASE
     Route: 058
     Dates: start: 201308, end: 201308
  4. HUMIRA [Suspect]
     Indication: ARTHRITIS
     Dosage: 2 WEEKS AFTER THE INITIAL DOSE
     Route: 058
     Dates: start: 201309, end: 201309
  5. HUMIRA [Suspect]
     Dosage: 4 WEEKS AFTER THE INITIAL DOSE
     Route: 058
     Dates: start: 201309
  6. TYLENOL [Concomitant]
     Indication: PAIN
  7. ALPRAZOLAM [Concomitant]
     Indication: ANXIETY
     Dosage: AS NEEDED
  8. ATORVASTATIN [Concomitant]
     Indication: BLOOD CHOLESTEROL INCREASED
  9. PREDNISONE [Concomitant]
     Indication: ARTHRITIS
  10. VITAMIN D3 [Concomitant]
     Indication: PRODUCT USED FOR UNKNOWN INDICATION
  11. ESTRACE [Concomitant]
     Indication: VAGINAL DISORDER
     Route: 067
  12. FISH OIL [Concomitant]
     Indication: PRODUCT USED FOR UNKNOWN INDICATION
  13. HYDROCODONE [Concomitant]
     Indication: PAIN
  14. METAMUCIL [Concomitant]
     Indication: PRODUCT USED FOR UNKNOWN INDICATION
  15. MACROBID [Concomitant]
     Indication: URINARY TRACT INFECTION
  16. PRESERVISION [Concomitant]
     Indication: VITAMIN SUPPLEMENTATION

REACTIONS (3)
  - Asthenia [Not Recovered/Not Resolved]
  - Drug ineffective [Not Recovered/Not Resolved]
  - Skin lesion [Recovering/Resolving]
